FAERS Safety Report 14450467 (Version 3)
Quarter: 2018Q1

REPORT INFORMATION
  Report Type: Spontaneous
  Country: US (occurrence: US)
  Receive Date: 20180129
  Receipt Date: 20180322
  Transmission Date: 20180509
  Serious: Yes (Other)
  Sender: FDA-Public Use
  Company Number: US-AMGEN-USASP2018010201

PATIENT
  Sex: Female

DRUGS (5)
  1. MTX [Suspect]
     Active Substance: METHOTREXATE SODIUM
     Indication: PSORIATIC ARTHROPATHY
     Dosage: UNK
     Route: 048
     Dates: start: 201601, end: 201703
  2. XELJANZ XR [Concomitant]
     Active Substance: TOFACITINIB CITRATE
     Indication: PSORIASIS
     Dosage: 11 MG, QD
     Route: 048
     Dates: start: 2018
  3. AMOXICILLIN. [Concomitant]
     Active Substance: AMOXICILLIN
     Dosage: 500 MG, AS NECESSARY
  4. ENBREL [Suspect]
     Active Substance: ETANERCEPT
     Indication: PSORIATIC ARTHROPATHY
     Dosage: 50 MG, 2 TIMES/WK
     Route: 065
     Dates: start: 201611, end: 201712
  5. MTX [Suspect]
     Active Substance: METHOTREXATE SODIUM
     Dosage: .4 CC AND HIGHER
     Route: 058

REACTIONS (4)
  - Abdominal discomfort [Unknown]
  - Rheumatoid arthritis [Not Recovered/Not Resolved]
  - Breast cancer [Unknown]
  - Drug effect incomplete [Unknown]
